FAERS Safety Report 21774744 (Version 1)
Quarter: 2022Q4

REPORT INFORMATION
  Report Type: Spontaneous
  Country: US (occurrence: US)
  Receive Date: 20221224
  Receipt Date: 20221224
  Transmission Date: 20230113
  Serious: No
  Sender: FDA-Public Use
  Company Number: US-GSK-US2002AMR000062

PATIENT
  Sex: Female
  Weight: 54.98 kg

DRUGS (2)
  1. IMITREX [Suspect]
     Active Substance: SUMATRIPTAN SUCCINATE
     Indication: Migraine
     Dosage: UNK
  2. DEPO-ESTRADIOL [Suspect]
     Active Substance: ESTRADIOL CYPIONATE
     Indication: Hormone replacement therapy
     Dosage: UNK UNK, WE, 5MG PER ML HALF A ML

REACTIONS (2)
  - Dysgeusia [Unknown]
  - Incorrect route of product administration [Unknown]
